FAERS Safety Report 9638468 (Version 1)
Quarter: 2013Q4

REPORT INFORMATION
  Report Type: Spontaneous
  Country: JP (occurrence: JP)
  Receive Date: 20131022
  Receipt Date: 20131022
  Transmission Date: 20140711
  Serious: Yes (Other)
  Sender: FDA-Public Use
  Company Number: JP-PFIZER INC-2013298371

PATIENT
  Age: 2 Year
  Sex: Male
  Weight: 9.6 kg

DRUGS (2)
  1. HYDROCORTISONE [Suspect]
     Indication: ADRENOGENITAL SYNDROME
     Dosage: UNK
     Route: 048
  2. FLUDROCORTISONE [Suspect]
     Indication: ADRENOGENITAL SYNDROME
     Dosage: UNK
     Route: 048

REACTIONS (4)
  - Hypercalcaemia [Unknown]
  - Calculus ureteric [Recovered/Resolved]
  - Hydronephrosis [Recovered/Resolved]
  - Hydroureter [Unknown]
